FAERS Safety Report 4993100-9 (Version None)
Quarter: 2006Q1

REPORT INFORMATION
  Report Type: 
  Country: None (occurrence: None)
  Receive Date: 20060313
  Receipt Date: 20051212
  Transmission Date: 20060701
  Serious: No
  Sender: FDA-Public Use
  Company Number: 2005-BP-21382BP

PATIENT
  Age: 82 Year
  Sex: Female

DRUGS (6)
  1. SPIRIVA [Suspect]
     Indication: CHRONIC OBSTRUCTIVE PULMONARY DISEASE
     Dosage: 18 MCG (18 MCG,1 CAPSULE),IH
     Dates: start: 20041001
  2. POTASSIUM [Concomitant]
  3. WATER PILLS [Concomitant]
  4. BLOOD PRESSURE PILLS [Concomitant]
  5. ANTIDEPRESSANTS (ANTIDEPRESSANTS) [Concomitant]
  6. ANTIPSYCHOTICS (ANTIPSYCHOTICS) [Concomitant]

REACTIONS (1)
  - DRUG EFFECT DECREASED [None]
